FAERS Safety Report 13068896 (Version 2)
Quarter: 2017Q1

REPORT INFORMATION
  Report Type: Report from Study
  Country: US (occurrence: US)
  Receive Date: 20161228
  Receipt Date: 20170120
  Transmission Date: 20170428
  Serious: Yes (Death, Life-Threatening, Hospitalization)
  Sender: FDA-Public Use
  Company Number: US-ACTELION-A-NJ2015-124533

PATIENT
  Age: 62 Year
  Sex: Female

DRUGS (13)
  1. LEVOTHYROXINE. [Concomitant]
     Active Substance: LEVOTHYROXINE
     Dosage: 150 MCG, QD
     Route: 048
  2. MS CONTIN [Concomitant]
     Active Substance: MORPHINE SULFATE
     Dosage: 15 MG, QD
     Route: 048
     Dates: start: 20161110
  3. WARFARIN [Concomitant]
     Active Substance: WARFARIN
  4. PANTOPRAZOLE [Concomitant]
     Active Substance: PANTOPRAZOLE SODIUM
     Dosage: 40 MG, UNK
     Route: 048
     Dates: start: 20160706
  5. ALBUTEROL. [Concomitant]
     Active Substance: ALBUTEROL
  6. SIMVASTATIN. [Concomitant]
     Active Substance: SIMVASTATIN
     Dosage: 20 MG, QD
     Route: 048
  7. PROTONIX [Concomitant]
     Active Substance: PANTOPRAZOLE SODIUM
  8. SILDENAFIL. [Concomitant]
     Active Substance: SILDENAFIL
  9. BUMEX [Concomitant]
     Active Substance: BUMETANIDE
     Dosage: 4 MG, BID
  10. SPIRONOLACTONE. [Concomitant]
     Active Substance: SPIRONOLACTONE
  11. OPSUMIT [Suspect]
     Active Substance: MACITENTAN
     Indication: PULMONARY HYPERTENSION
     Dosage: 10 MG, QD
     Route: 048
     Dates: start: 20150918, end: 20161108
  12. LORAZEPAM. [Concomitant]
     Active Substance: LORAZEPAM
     Dosage: 0.5 MG, Q6HRS, PRN
  13. ADCIRCA [Concomitant]
     Active Substance: TADALAFIL
     Dosage: 20 MG, QD
     Route: 048
     Dates: start: 20161003

REACTIONS (18)
  - Respiratory failure [Unknown]
  - Pain in extremity [Unknown]
  - Aortic stenosis [Unknown]
  - Condition aggravated [Unknown]
  - Dizziness [Unknown]
  - Dyspnoea [Unknown]
  - Headache [Unknown]
  - Fluid overload [Unknown]
  - Oxygen saturation decreased [Unknown]
  - Vomiting [Unknown]
  - Nasal congestion [Unknown]
  - Deep vein thrombosis [Unknown]
  - Pulmonary hypertension [Unknown]
  - Rhinorrhoea [Unknown]
  - Pulmonary arterial wedge pressure increased [Unknown]
  - Cough [Unknown]
  - Death [Fatal]
  - Metabolic alkalosis [Unknown]

NARRATIVE: CASE EVENT DATE: 20160307
